FAERS Safety Report 9185462 (Version 3)
Quarter: 2013Q4

REPORT INFORMATION
  Report Type: Spontaneous
  Country: AT (occurrence: AT)
  Receive Date: 20121101
  Receipt Date: 20131114
  Transmission Date: 20140711
  Serious: Yes (Death, Life-Threatening)
  Sender: FDA-Public Use
  Company Number: AT-PFIZER INC-2012269735

PATIENT
  Age: 41 Year
  Sex: Male

DRUGS (15)
  1. ECALTA [Suspect]
     Indication: CANDIDA INFECTION
     Dosage: 200 MG, UNK
     Route: 042
     Dates: start: 20121002, end: 20121002
  2. DIFLUCAN [Concomitant]
     Indication: ANTIBIOTIC THERAPY
     Dosage: 200 MG, DAILY
     Route: 042
     Dates: end: 20121002
  3. MEROPENEM [Concomitant]
     Indication: ANTIBIOTIC THERAPY
     Dosage: 1 G, 3X/DAY
     Route: 042
     Dates: end: 20121002
  4. FENTANYL [Concomitant]
     Route: 042
  5. HYDROCORTISONE [Concomitant]
     Dosage: 250 MG, DAILY
     Route: 042
  6. DORMICUM [Concomitant]
     Route: 042
  7. ESMERON [Concomitant]
     Route: 042
  8. NOVORAPID [Concomitant]
     Route: 042
  9. CLONIDINE [Concomitant]
     Route: 042
  10. PANTOLOC [Concomitant]
     Dosage: 40 MG, 2X/DAY
     Route: 042
  11. HEPA-MERZ [Concomitant]
  12. PASPERTIN [Concomitant]
     Dosage: 1 DF, 3X/DAY
     Route: 042
  13. PROPOFOL [Concomitant]
  14. TOBRAMYCIN [Concomitant]
     Indication: ANTIBIOTIC THERAPY
     Dosage: 360 MG, DAILY
  15. NOREPINEPHRINE [Concomitant]
     Indication: HAEMODYNAMIC INSTABILITY

REACTIONS (5)
  - Hypoxic-ischaemic encephalopathy [Fatal]
  - Hepatic encephalopathy [Fatal]
  - Haemodynamic instability [Fatal]
  - Bradycardia [Fatal]
  - Hypotension [Fatal]
